FAERS Safety Report 8369271-3 (Version None)
Quarter: 2012Q2

REPORT INFORMATION
  Report Type: 
  Country: None (occurrence: None)
  Receive Date: 20120518
  Receipt Date: 20120510
  Transmission Date: 20120825
  Serious: Yes (Other)
  Sender: FDA-Public Use
  Company Number: PHHY2009CA14626

PATIENT
  Sex: Female

DRUGS (2)
  1. SANDOSTATIN LAR [Suspect]
     Dosage: 30 MG, EVERY 3 WEEKS
     Route: 030
  2. SANDOSTATIN LAR [Suspect]
     Indication: ACROMEGALY
     Dosage: 20 MG EVERY 4 WEEKS
     Route: 030
     Dates: start: 20090119

REACTIONS (8)
  - BREAST TENDERNESS [None]
  - VISION BLURRED [None]
  - FATIGUE [None]
  - HYPOAESTHESIA ORAL [None]
  - MENSTRUATION IRREGULAR [None]
  - SWELLING FACE [None]
  - HEADACHE [None]
  - TENDERNESS [None]
